FAERS Safety Report 21374457 (Version 3)
Quarter: 2022Q4

REPORT INFORMATION
  Report Type: Spontaneous
  Country: AU (occurrence: AU)
  Receive Date: 20220926
  Receipt Date: 20221104
  Transmission Date: 20230112
  Serious: Yes (Other)
  Sender: FDA-Public Use
  Company Number: AU-NOVARTISPH-NVSC2022AU216308

PATIENT
  Sex: Female

DRUGS (21)
  1. CYCLOSPORINE [Suspect]
     Active Substance: CYCLOSPORINE
     Indication: Chronic graft versus host disease in skin
     Dosage: UNK
     Route: 065
  2. CYCLOSPORINE [Suspect]
     Active Substance: CYCLOSPORINE
     Indication: Chronic graft versus host disease in eye
  3. CYCLOSPORINE [Suspect]
     Active Substance: CYCLOSPORINE
     Indication: Chronic graft versus host disease oral
  4. CYCLOSPORINE [Suspect]
     Active Substance: CYCLOSPORINE
     Indication: Chronic graft versus host disease in intestine
  5. CYCLOSPORINE [Suspect]
     Active Substance: CYCLOSPORINE
     Indication: Chronic graft versus host disease in lung
  6. MYCOPHENOLATE MOFETIL [Suspect]
     Active Substance: MYCOPHENOLATE MOFETIL
     Indication: Chronic graft versus host disease in skin
     Dosage: UNK
     Route: 065
  7. MYCOPHENOLATE MOFETIL [Suspect]
     Active Substance: MYCOPHENOLATE MOFETIL
     Indication: Chronic graft versus host disease in eye
  8. MYCOPHENOLATE MOFETIL [Suspect]
     Active Substance: MYCOPHENOLATE MOFETIL
     Indication: Chronic graft versus host disease oral
  9. MYCOPHENOLATE MOFETIL [Suspect]
     Active Substance: MYCOPHENOLATE MOFETIL
     Indication: Chronic graft versus host disease in intestine
  10. MYCOPHENOLATE MOFETIL [Suspect]
     Active Substance: MYCOPHENOLATE MOFETIL
     Indication: Chronic graft versus host disease in lung
  11. TACROLIMUS [Suspect]
     Active Substance: TACROLIMUS
     Indication: Chronic graft versus host disease in skin
     Dosage: UNK
     Route: 065
  12. TACROLIMUS [Suspect]
     Active Substance: TACROLIMUS
     Indication: Chronic graft versus host disease in eye
  13. TACROLIMUS [Suspect]
     Active Substance: TACROLIMUS
     Indication: Chronic graft versus host disease oral
  14. TACROLIMUS [Suspect]
     Active Substance: TACROLIMUS
     Indication: Chronic graft versus host disease in intestine
  15. TACROLIMUS [Suspect]
     Active Substance: TACROLIMUS
     Indication: Chronic graft versus host disease in lung
  16. POSACONAZOLE [Suspect]
     Active Substance: POSACONAZOLE
     Indication: Product used for unknown indication
     Dosage: 300 MG (3 MONTHS AGO)
     Route: 065
  17. PREDNISONE [Suspect]
     Active Substance: PREDNISONE
     Indication: Chronic graft versus host disease in skin
     Dosage: UNK
     Route: 065
  18. PREDNISONE [Suspect]
     Active Substance: PREDNISONE
     Indication: Chronic graft versus host disease in eye
  19. PREDNISONE [Suspect]
     Active Substance: PREDNISONE
     Indication: Chronic graft versus host disease oral
  20. PREDNISONE [Suspect]
     Active Substance: PREDNISONE
     Indication: Chronic graft versus host disease in intestine
  21. PREDNISONE [Suspect]
     Active Substance: PREDNISONE
     Indication: Chronic graft versus host disease in lung

REACTIONS (9)
  - Chronic graft versus host disease in lung [Unknown]
  - Disease progression [Unknown]
  - Therapeutic product effect incomplete [Unknown]
  - Pulmonary function test decreased [Unknown]
  - Weight decreased [Unknown]
  - Quality of life decreased [Unknown]
  - Obstructive airways disorder [Unknown]
  - Lung hyperinflation [Unknown]
  - Product use in unapproved indication [Unknown]
